FAERS Safety Report 9849930 (Version 1)
Quarter: 2014Q1

REPORT INFORMATION
  Report Type: Spontaneous
  Country: US (occurrence: None)
  Receive Date: 20140124
  Receipt Date: 20140124
  Transmission Date: 20141002
  Serious: Yes (Other)
  Sender: FDA-Public Use
  Company Number: None

PATIENT
  Age: 65 Year
  Sex: Female
  Weight: 86.18 kg

DRUGS (1)
  1. LIDOCAINE PATCH 5% (DR. REDDY^S LABORATORIES) (LIDOCAINE) [Suspect]
     Indication: NEUROPATHY PERIPHERAL

REACTIONS (5)
  - Pain in extremity [None]
  - Muscle spasms [None]
  - Muscular weakness [None]
  - VIIth nerve paralysis [None]
  - Dehydration [None]
